FAERS Safety Report 10306783 (Version 3)
Quarter: 2015Q1

REPORT INFORMATION
  Report Type: Report from Study
  Country: US (occurrence: US)
  Receive Date: 20140715
  Receipt Date: 20150312
  Transmission Date: 20150720
  Serious: Yes (Hospitalization)
  Sender: FDA-Public Use
  Company Number: US-ACTELION-A-US2014-101773

PATIENT
  Age: 35 Year
  Sex: Female

DRUGS (7)
  1. HYDROXYUREA. [Concomitant]
     Active Substance: HYDROXYUREA
     Dosage: 1000 MG, QD
  2. TRACLEER [Suspect]
     Active Substance: BOSENTAN\BOSENTAN MONOHYDRATE
     Indication: PULMONARY HYPERTENSION
     Dosage: 125 MG, BID
     Route: 048
  3. OXYCONTIN [Concomitant]
     Active Substance: OXYCODONE HYDROCHLORIDE
     Dosage: 40 MG, Q12HRS
  4. FOLIC ACID. [Concomitant]
     Active Substance: FOLIC ACID
     Dosage: 1 MG, QD
  5. OXYCODONE [Concomitant]
     Active Substance: OXYCODONE
     Dosage: 15 MG, Q4HRS PRN
  6. ALDACTONE [Concomitant]
     Active Substance: SPIRONOLACTONE
     Dosage: 25 MG, QD
  7. HYDROXYUREA. [Concomitant]
     Active Substance: HYDROXYUREA
     Dosage: 500 MG, QD
     Route: 048

REACTIONS (1)
  - Sickle cell anaemia with crisis [Recovered/Resolved]
